FAERS Safety Report 24698835 (Version 1)
Quarter: 2024Q4

REPORT INFORMATION
  Report Type: Spontaneous
  Country: US (occurrence: US)
  Receive Date: 20241205
  Receipt Date: 20241205
  Transmission Date: 20250114
  Serious: Yes (Other)
  Sender: STRIDES
  Company Number: US-STRIDES ARCOLAB LIMITED-2024SP013240

PATIENT
  Age: 69 Year
  Sex: Male

DRUGS (14)
  1. OLANZAPINE [Suspect]
     Active Substance: OLANZAPINE
     Indication: Schizoaffective disorder bipolar type
     Dosage: 15 MILLIGRAM, BID
     Route: 065
     Dates: start: 2022
  2. GABAPENTIN [Suspect]
     Active Substance: GABAPENTIN
     Indication: Schizoaffective disorder bipolar type
     Dosage: UNK
     Route: 065
     Dates: start: 2022
  3. DIVALPROEX SODIUM [Suspect]
     Active Substance: DIVALPROEX SODIUM
     Indication: Schizoaffective disorder bipolar type
     Dosage: UNK, BID (UP TO 250 MG)
     Route: 065
     Dates: start: 2022
  4. OXCARBAZEPINE [Suspect]
     Active Substance: OXCARBAZEPINE
     Indication: Schizoaffective disorder bipolar type
     Dosage: 150 MILLIGRAM, BID
     Route: 065
     Dates: start: 2022
  5. RIVASTIGMINE [Suspect]
     Active Substance: RIVASTIGMINE
     Indication: Schizoaffective disorder bipolar type
     Dosage: 1.5 MILLIGRAM, BID
     Route: 065
     Dates: start: 2023, end: 2023
  6. GALANTAMINE [Suspect]
     Active Substance: GALANTAMINE
     Indication: Schizoaffective disorder bipolar type
     Dosage: 4 MILLIGRAM, BID
     Route: 065
     Dates: start: 2023, end: 2023
  7. CLOZAPINE [Concomitant]
     Active Substance: CLOZAPINE
     Indication: Schizoaffective disorder bipolar type
     Dosage: 125 MILLIGRAM, AT BED TIME (AT NIGHT)
     Route: 065
     Dates: start: 202304, end: 2023
  8. CLOZAPINE [Concomitant]
     Active Substance: CLOZAPINE
     Dosage: 50 MILLIGRAM, QD
     Route: 065
     Dates: start: 2023
  9. DONEPEZIL [Concomitant]
     Active Substance: DONEPEZIL
     Indication: Schizoaffective disorder bipolar type
     Dosage: 5 MILLIGRAM, OD
     Route: 065
     Dates: start: 202304, end: 202305
  10. DONEPEZIL [Concomitant]
     Active Substance: DONEPEZIL
     Dosage: 10 MILLIGRAM, QD
     Route: 065
     Dates: start: 202305, end: 2023
  11. DONEPEZIL [Concomitant]
     Active Substance: DONEPEZIL
     Dosage: 5 MILLIGRAM, QD
     Route: 065
     Dates: start: 202309
  12. HALOPERIDOL [Concomitant]
     Active Substance: HALOPERIDOL
     Indication: Schizoaffective disorder bipolar type
     Dosage: 7.5 MILLIGRAM, BID
     Route: 065
     Dates: start: 202304, end: 2023
  13. HALOPERIDOL [Concomitant]
     Active Substance: HALOPERIDOL
     Indication: Agitation
     Dosage: 5 MILLIGRAM, BID
     Route: 065
     Dates: start: 2023
  14. LORAZEPAM [Concomitant]
     Active Substance: LORAZEPAM
     Indication: Agitation
     Dosage: UNK
     Route: 065
     Dates: start: 2023

REACTIONS (3)
  - Therapy non-responder [Unknown]
  - Sedation [Unknown]
  - Off label use [Unknown]

NARRATIVE: CASE EVENT DATE: 20220101
